FAERS Safety Report 5388071-X (Version None)
Quarter: 2007Q3

REPORT INFORMATION
  Report Type: 
  Country: None (occurrence: None)
  Receive Date: 20070716
  Receipt Date: 20070704
  Transmission Date: 20080115
  Serious: Yes (Other)
  Sender: FDA-Public Use
  Company Number: FR-ROCHE-505519

PATIENT
  Age: 50 Day
  Sex: Male

DRUGS (3)
  1. CEFTRIAXONE SODIUM [Suspect]
     Indication: URINARY TRACT INFECTION
     Dosage: GIVEN BY SLOW INTRAVENOUS INJECTION OVER 2 MINUTES.
     Route: 042
  2. CEFTRIAXONE SODIUM [Suspect]
     Dosage: GIVEN THE NEXT DAY BY SLOW INTRAVENOUS INJECTION OVER 1 HOUR.
     Route: 042
  3. GENTAMICIN [Concomitant]
     Indication: URINARY TRACT INFECTION

REACTIONS (1)
  - HYPOVOLAEMIC SHOCK [None]
